FAERS Safety Report 6013041-8 (Version None)
Quarter: 2008Q4

REPORT INFORMATION
  Report Type: 
  Country: None (occurrence: None)
  Receive Date: 20081219
  Receipt Date: 20081212
  Transmission Date: 20090506
  Serious: Yes (Other)
  Sender: FDA-Public Use
  Company Number: US-AVENTIS-200818459US

PATIENT
  Sex: Female

DRUGS (3)
  1. LOVENOX [Suspect]
     Dosage: DOSE: UNK
  2. LOVENOX [Suspect]
     Indication: FACTOR V LEIDEN MUTATION
     Dosage: DOSE: UNK
  3. ASPIRIN [Concomitant]
     Dosage: DOSE: UNK

REACTIONS (4)
  - ABORTION SPONTANEOUS [None]
  - DRUG EXPOSURE DURING PREGNANCY [None]
  - DRUG INEFFECTIVE [None]
  - THROMBOSIS [None]
